FAERS Safety Report 25376434 (Version 1)
Quarter: 2025Q2

REPORT INFORMATION
  Report Type: Spontaneous
  Country: US (occurrence: US)
  Receive Date: 20250529
  Receipt Date: 20250529
  Transmission Date: 20250716
  Serious: No
  Sender: AMGEN
  Company Number: US-AMGEN-USASP2025106194

PATIENT
  Sex: Female

DRUGS (3)
  1. OTEZLA [Suspect]
     Active Substance: APREMILAST
     Indication: Psoriasis
     Route: 048
  2. LOSARTAN POTASSIUM [Concomitant]
     Active Substance: LOSARTAN POTASSIUM
  3. MELOXICAM [Concomitant]
     Active Substance: MELOXICAM

REACTIONS (4)
  - Psoriasis [Unknown]
  - Emotional disorder [Not Recovered/Not Resolved]
  - Pain [Not Recovered/Not Resolved]
  - Therapy cessation [Unknown]
